FAERS Safety Report 24583377 (Version 1)
Quarter: 2024Q4

REPORT INFORMATION
  Report Type: Spontaneous
  Country: US (occurrence: US)
  Receive Date: 20241106
  Receipt Date: 20241106
  Transmission Date: 20250114
  Serious: No
  Sender: Haleon PLC
  Company Number: US-HALEON-2206905

PATIENT
  Age: 79 Year
  Sex: Female

DRUGS (1)
  1. SENSODYNE CLINICAL WHITE ENAMEL STRENGTHENING [Suspect]
     Active Substance: POTASSIUM NITRATE\SODIUM FLUORIDE
     Indication: Product used for unknown indication
     Dosage: 2 - APPLICATION (AP)
     Dates: start: 20240601, end: 20241105

REACTIONS (2)
  - Oral mucosal exfoliation [Not Recovered/Not Resolved]
  - Drug ineffective [Unknown]

NARRATIVE: CASE EVENT DATE: 20240601
